FAERS Safety Report 5949072-3 (Version None)
Quarter: 2008Q4

REPORT INFORMATION
  Report Type: 
  Country: None (occurrence: None)
  Receive Date: 20081111
  Receipt Date: 20081030
  Transmission Date: 20090506
  Serious: Yes (Other)
  Sender: FDA-Public Use
  Company Number: US-PFIZER INC-2008092263

PATIENT
  Sex: Female

DRUGS (1)
  1. DETROL LA [Suspect]

REACTIONS (5)
  - DIARRHOEA [None]
  - DRUG INEFFECTIVE [None]
  - DRUG LEVEL INCREASED [None]
  - FRUSTRATION [None]
  - VOMITING [None]
